FAERS Safety Report 22161260 (Version 1)
Quarter: 2023Q1

REPORT INFORMATION
  Report Type: Report from Study
  Country: US (occurrence: US)
  Receive Date: 20230331
  Receipt Date: 20230331
  Transmission Date: 20230418
  Serious: Yes (Other)
  Sender: FDA-Public Use
  Company Number: US-ALNYLAM PHARMACEUTICALS, INC.-ALN-2023-001363

PATIENT

DRUGS (2)
  1. AMVUTTRA [Suspect]
     Active Substance: VUTRISIRAN
     Indication: Hereditary neuropathic amyloidosis
     Dosage: UNK
     Route: 065
     Dates: start: 20221222
  2. AMVUTTRA [Suspect]
     Active Substance: VUTRISIRAN
     Dosage: UNK
     Route: 065
     Dates: start: 20230322

REACTIONS (6)
  - Hip arthroplasty [Unknown]
  - Fall [Unknown]
  - Muscular weakness [Unknown]
  - Hypoaesthesia [Unknown]
  - Diarrhoea [Unknown]
  - Pain in extremity [Unknown]

NARRATIVE: CASE EVENT DATE: 20230101
